FAERS Safety Report 8272299-5 (Version None)
Quarter: 2012Q2

REPORT INFORMATION
  Report Type: 
  Country: None (occurrence: None)
  Receive Date: 20120410
  Receipt Date: 20120326
  Transmission Date: 20120825
  Serious: Yes (Hospitalization)
  Sender: FDA-Public Use
  Company Number: EG-WATSON-2012-05588

PATIENT
  Age: 62 Year
  Sex: Male

DRUGS (1)
  1. ALLOPURINOL [Suspect]
     Indication: GOUT
     Dosage: THERAPEUTIC DOSE
     Route: 065

REACTIONS (2)
  - COMPARTMENT SYNDROME [None]
  - TOXIC EPIDERMAL NECROLYSIS [None]
